FAERS Safety Report 19950225 (Version 1)
Quarter: 2021Q4

REPORT INFORMATION
  Report Type: Spontaneous
  Country: US (occurrence: US)
  Receive Date: 20211011
  Receipt Date: 20211011
  Transmission Date: 20220303
  Serious: No
  Sender: FDA-Public Use
  Company Number: None

PATIENT
  Sex: Male

DRUGS (1)
  1. HUMIRA [Suspect]
     Active Substance: ADALIMUMAB
     Indication: Psoriasis
     Dosage: ?          OTHER FREQUENCY:EVERY 14 DAYS;
     Route: 030
     Dates: start: 202107

REACTIONS (6)
  - Device malfunction [None]
  - Device leakage [None]
  - Accidental exposure to product [None]
  - Pruritus [None]
  - Skin swelling [None]
  - Incorrect dose administered [None]
